FAERS Safety Report 4362233-2 (Version None)
Quarter: 2004Q2

REPORT INFORMATION
  Report Type: 
  Country: None (occurrence: None)
  Receive Date: 20040517
  Receipt Date: 20040506
  Transmission Date: 20050107
  Serious: Yes (Hospitalization)
  Sender: FDA-Public Use
  Company Number: 20040500298

PATIENT
  Age: 83 Year
  Sex: Male
  Weight: 84.369 kg

DRUGS (5)
  1. REGLAN [Suspect]
  2. HYDROCHLOROTHIAZIDE [Concomitant]
  3. ISOPTIN SR (VERAPAMIL HCL) [Concomitant]
  4. MAVIK (TRANDOLOPRIL) ABBOTT [Concomitant]
  5. TARKA (TRANDOLOPRIL/VERAPAMIL HCL) ABBOTT [Concomitant]

REACTIONS (4)
  - CAROTID ARTERY STENOSIS [None]
  - DEPRESSED LEVEL OF CONSCIOUSNESS [None]
  - ENCEPHALOPATHY [None]
  - TRANSIENT ISCHAEMIC ATTACK [None]
